FAERS Safety Report 7243572-4 (Version None)
Quarter: 2011Q1

REPORT INFORMATION
  Report Type: 
  Country: None (occurrence: None)
  Receive Date: 20110125
  Receipt Date: 20110113
  Transmission Date: 20110831
  Serious: Yes (Other)
  Sender: FDA-Public Use
  Company Number: PHHY2010JP82603

PATIENT
  Sex: Male

DRUGS (18)
  1. AFINITOR [Suspect]
     Indication: METASTATIC RENAL CELL CARCINOMA
     Dosage: 10 MG, QD
     Route: 048
     Dates: start: 20100902, end: 20100917
  2. MUCOSOLVAN [Concomitant]
     Dosage: 45 MG
     Route: 048
     Dates: start: 20101012
  3. TPN ELECTROLYTES IN PLASTIC CONTAINER [Concomitant]
     Dosage: 1000 ML
     Route: 042
     Dates: start: 20100907, end: 20100914
  4. ALFALFA [Concomitant]
     Indication: METASTATIC RENAL CELL CARCINOMA
     Dosage: 1MICRO G
     Route: 048
     Dates: start: 20100827, end: 20100922
  5. ZOMETA [Concomitant]
     Dosage: 3.2 MG
     Route: 042
     Dates: start: 20100819, end: 20101001
  6. TAKEPRON [Concomitant]
     Dosage: 15 MG, UNK
     Route: 048
     Dates: start: 20100913, end: 20100920
  7. OXYCODONE HYDROCHLORIDE [Concomitant]
     Indication: METASTATIC RENAL CELL CARCINOMA
     Dosage: UNK
     Route: 048
     Dates: start: 20100819, end: 20100908
  8. DASEN [Concomitant]
     Dosage: UNK
     Route: 048
     Dates: start: 20100902, end: 20100911
  9. MEDICON [Concomitant]
     Dosage: 15 MG, UNK
     Route: 048
     Dates: start: 20100819, end: 20100918
  10. HYPEN [Concomitant]
     Indication: METASTATIC RENAL CELL CARCINOMA
     Dosage: 400 MG, UNK
     Route: 048
     Dates: start: 20100816, end: 20100920
  11. ENSURE [Concomitant]
     Indication: METASTATIC RENAL CELL CARCINOMA
     Dosage: 500 ML, UNK
     Route: 048
     Dates: start: 20100905, end: 20100907
  12. AFINITOR [Suspect]
     Dosage: 10 MG, QD
     Route: 048
     Dates: start: 20101215
  13. WYPAX [Concomitant]
     Dosage: UNK
     Route: 048
     Dates: start: 20100913, end: 20100918
  14. AFINITOR [Suspect]
     Dosage: 5 MG, QD
     Route: 048
     Dates: start: 20100924, end: 20101007
  15. AFINITOR [Suspect]
     Dosage: 5 MG, QD
     Route: 048
     Dates: start: 20101026, end: 20101130
  16. LENDORMIN [Concomitant]
     Dosage: 0.25 MG, UNK
     Route: 048
     Dates: end: 20100930
  17. BISOLVON [Concomitant]
     Dosage: 8 MG, UNK
     Dates: start: 20100907, end: 20100908
  18. MAGMITT [Concomitant]
     Dosage: UNK
     Route: 048

REACTIONS (2)
  - HYPOKALAEMIA [None]
  - LYMPHOCYTE COUNT DECREASED [None]
